FAERS Safety Report 5187851-3 (Version None)
Quarter: 2006Q4

REPORT INFORMATION
  Report Type: 
  Country: None (occurrence: None)
  Receive Date: 20061221
  Receipt Date: 20060913
  Transmission Date: 20070319
  Serious: No
  Sender: FDA-Public Use
  Company Number: US-GLAXOSMITHKLINE-A0620039A

PATIENT
  Age: 55 Year
  Sex: Female

DRUGS (1)
  1. AVANDARYL [Suspect]
     Dosage: 4MG PER DAY
     Route: 048
     Dates: start: 20060912

REACTIONS (1)
  - ABDOMINAL PAIN UPPER [None]
